FAERS Safety Report 9737546 (Version 1)
Quarter: 2013Q4

REPORT INFORMATION
  Report Type: Spontaneous
  Country: AU (occurrence: AU)
  Receive Date: 20131207
  Receipt Date: 20131207
  Transmission Date: 20140711
  Serious: Yes (Other)
  Sender: FDA-Public Use
  Company Number: AU-AMGEN-AUSSP2013084768

PATIENT
  Age: 83 Year
  Sex: Female

DRUGS (3)
  1. PROLIA [Suspect]
     Indication: PRODUCT USED FOR UNKNOWN INDICATION
     Dosage: 60 MG, UNK
     Route: 058
  2. CALCIUM [Concomitant]
     Dosage: 600MG/500 IU, BID
     Route: 048
  3. CHOLECALCIFEROL [Concomitant]
     Dosage: 600 MG/500 IU, BID

REACTIONS (4)
  - Muscle spasms [Recovered/Resolved]
  - Hypotension [Recovered/Resolved]
  - Atrial fibrillation [Unknown]
  - Hypocalcaemia [Recovered/Resolved]
